FAERS Safety Report 5929967-7 (Version None)
Quarter: 2008Q4

REPORT INFORMATION
  Report Type: 
  Country: None (occurrence: None)
  Receive Date: 20081024
  Receipt Date: 20081017
  Transmission Date: 20090506
  Serious: Yes (Death)
  Sender: FDA-Public Use
  Company Number: JP-ABBOTT-08P-087-0483441-00

PATIENT
  Age: 89 Year
  Sex: Male

DRUGS (12)
  1. LEUPROLIDE ACETATE [Suspect]
     Indication: PROSTATE CANCER STAGE IV
     Dates: start: 20060413, end: 20071126
  2. LANSOPRAZOLE [Concomitant]
     Indication: PROPHYLAXIS AGAINST GASTROINTESTINAL ULCER
     Route: 048
     Dates: start: 20071126, end: 20080106
  3. BICALUTAMIDE [Concomitant]
     Indication: PROSTATE CANCER STAGE IV
     Route: 048
     Dates: end: 20070801
  4. ALOSENN [Concomitant]
     Indication: CONSTIPATION
     Route: 048
     Dates: end: 20080106
  5. MORPHINE SULFATE INJ [Concomitant]
     Indication: CANCER PAIN
     Route: 048
     Dates: end: 20070912
  6. MORPHINE SULFATE INJ [Concomitant]
     Route: 048
     Dates: start: 20070913, end: 20080106
  7. FUROSEMIDE [Concomitant]
     Indication: OEDEMA
     Route: 048
     Dates: end: 20080106
  8. SODIUM PICOSULFATE [Concomitant]
     Indication: CONSTIPATION
     Route: 048
     Dates: start: 20060608, end: 20080106
  9. INDOMETHACIN [Concomitant]
     Indication: CANCER PAIN
     Route: 062
     Dates: start: 20060622, end: 20080106
  10. FLUTAMIDE [Concomitant]
     Indication: PROSTATE CANCER STAGE IV
     Route: 048
     Dates: start: 20070802, end: 20070912
  11. DEXAMETHASONE [Concomitant]
     Indication: PROSTATE CANCER STAGE IV
     Route: 048
     Dates: start: 20071126, end: 20080106
  12. NAPROXEN [Concomitant]
     Indication: CANCER PAIN
     Route: 048
     Dates: start: 20071126, end: 20080106

REACTIONS (2)
  - PROSTATE CANCER [None]
  - PRURITUS [None]
